FAERS Safety Report 18620396 (Version 2)
Quarter: 2021Q1

REPORT INFORMATION
  Report Type: Spontaneous
  Country: US (occurrence: US)
  Receive Date: 20201216
  Receipt Date: 20210317
  Transmission Date: 20210419
  Serious: Yes (Other)
  Sender: FDA-Public Use
  Company Number: US-BRISTOL-MYERS SQUIBB COMPANY-BMS-2020-106580

PATIENT
  Sex: Male
  Weight: 77.1 kg

DRUGS (1)
  1. OPDIVO [Suspect]
     Active Substance: NIVOLUMAB
     Indication: NODULE
     Dosage: 480 MILLIGRAM
     Route: 065
     Dates: start: 2020

REACTIONS (3)
  - Lung opacity [Unknown]
  - Pulmonary fibrosis [Unknown]
  - Atelectasis [Unknown]
